FAERS Safety Report 4997218-6 (Version None)
Quarter: 2006Q1

REPORT INFORMATION
  Report Type: 
  Country: None (occurrence: None)
  Receive Date: 20060315
  Receipt Date: 20051129
  Transmission Date: 20060701
  Serious: Yes (Other)
  Sender: FDA-Public Use
  Company Number: 426863

PATIENT
  Age: 77 Year
  Sex: Female
  Weight: 49.9 kg

DRUGS (3)
  1. BONIVA [Suspect]
     Indication: OSTEOPOROSIS
     Dosage: ORAL
     Route: 048
     Dates: start: 20051117
  2. UNCLASSIFIED DRUG (GENERIC UNKNOWN) [Concomitant]
  3. FOSAMAX [Concomitant]

REACTIONS (2)
  - DYSURIA [None]
  - RECTAL TENESMUS [None]
